FAERS Safety Report 11127486 (Version 1)
Quarter: 2015Q2

REPORT INFORMATION
  Report Type: Spontaneous
  Country: US (occurrence: None)
  Receive Date: 20150520
  Receipt Date: 20150520
  Transmission Date: 20150821
  Serious: Yes (Hospitalization)
  Sender: FDA-Public Use
  Company Number: None

PATIENT
  Age: 70 Year
  Sex: Male
  Weight: 101.4 kg

DRUGS (1)
  1. SUCCINYLCHOLINE [Suspect]
     Active Substance: SUCCINYLCHOLINE
     Dates: start: 20141113

REACTIONS (5)
  - Blood cholinesterase abnormal [None]
  - Post procedural complication [None]
  - Respiratory arrest [None]
  - Drug effect prolonged [None]
  - Paralysis [None]

NARRATIVE: CASE EVENT DATE: 20141113
